FAERS Safety Report 5169432-0 (Version None)
Quarter: 2006Q4

REPORT INFORMATION
  Report Type: 
  Country: None (occurrence: None)
  Receive Date: 20061201
  Receipt Date: 20061121
  Transmission Date: 20070319
  Serious: Yes (Other)
  Sender: FDA-Public Use
  Company Number: 2006144754

PATIENT
  Age: 31 Year
  Sex: Female

DRUGS (3)
  1. ALPRAZOLAM [Suspect]
     Indication: PANIC DISORDER
     Dosage: 1 MG (0.5 MG, 2 IN 1D);
  2. SERTRALINE [Suspect]
     Indication: PANIC DISORDER
     Dosage: 100 MG (25 MG, 4 IN 1 D);
  3. PAROXETINE [Suspect]
     Indication: PANIC DISORDER
     Dosage: 20 MG (20 MG, 1 IN 1 D);

REACTIONS (9)
  - AGITATION [None]
  - ALCOHOLISM [None]
  - DEATH OF CHILD [None]
  - DEPRESSION [None]
  - HOMICIDE [None]
  - INTENTIONAL OVERDOSE [None]
  - RESTLESSNESS [None]
  - SUICIDAL IDEATION [None]
  - TENSION [None]
